FAERS Safety Report 6618207-1 (Version None)
Quarter: 2010Q1

REPORT INFORMATION
  Report Type: 
  Country: None (occurrence: None)
  Receive Date: 20100308
  Receipt Date: 20100224
  Transmission Date: 20100710
  Serious: Yes (Hospitalization)
  Sender: FDA-Public Use
  Company Number: JP-PFIZER INC-2010021778

PATIENT
  Age: 68 Year
  Sex: Female
  Weight: 51 kg

DRUGS (7)
  1. EXEMESTANE [Suspect]
     Indication: BREAST CANCER RECURRENT
     Dosage: DAILY
     Route: 048
     Dates: start: 20060124
  2. LAXOBERON [Concomitant]
     Route: 048
  3. WYPAX [Concomitant]
     Indication: DEPRESSION
     Route: 048
  4. DOGMATYL [Concomitant]
     Indication: DEPRESSION
     Route: 048
  5. PAXIL [Concomitant]
     Indication: DEPRESSION
     Route: 048
  6. RESLIN [Concomitant]
     Indication: DEPRESSION
     Route: 048
     Dates: start: 20070912, end: 20070912
  7. LENDORMIN [Concomitant]
     Indication: DEPRESSION
     Route: 048
     Dates: start: 20070912, end: 20070912

REACTIONS (1)
  - HERPES ZOSTER [None]
